FAERS Safety Report 15546569 (Version 1)
Quarter: 2018Q4

REPORT INFORMATION
  Report Type: Spontaneous
  Country: US (occurrence: ZA)
  Receive Date: 20181024
  Receipt Date: 20181024
  Transmission Date: 20190205
  Serious: Yes (Other)
  Sender: FDA-Public Use
  Company Number: ZA-STI PHARMA LLC-2056964

PATIENT
  Age: 37 Year
  Sex: Male

DRUGS (18)
  1. ISONIAZID. [Suspect]
     Active Substance: ISONIAZID
     Route: 048
     Dates: start: 20180725, end: 20180926
  2. EMTRICITABINE WITH TENOFOVIR [Concomitant]
  3. METOCLOPRAMIDE HYDROCHLORIDE. [Concomitant]
     Active Substance: METOCLOPRAMIDE HYDROCHLORIDE
  4. PYRIDOXINE HYDROCHLORIDE. [Concomitant]
     Active Substance: PYRIDOXINE HYDROCHLORIDE
  5. DELAMINID [Suspect]
     Active Substance: DELAMANID
     Route: 048
     Dates: start: 20180806
  6. MAGNESIUM CHLORIDE. [Concomitant]
     Active Substance: MAGNESIUM CHLORIDE
  7. ETHAMBUTOL HYDROCHLORIDE. [Suspect]
     Active Substance: ETHAMBUTOL HYDROCHLORIDE
     Route: 048
     Dates: start: 20171010
  8. AMINOSALICYLIC ACID [Suspect]
     Active Substance: AMINOSALICYLIC ACID
     Dates: start: 20180806, end: 20180920
  9. LINEZOLID. [Suspect]
     Active Substance: LINEZOLID
     Route: 048
     Dates: start: 20180806
  10. LEVOFLOXACIN. [Suspect]
     Active Substance: LEVOFLOXACIN
     Route: 048
     Dates: start: 20180725
  11. PYRAZINAMIDE. [Suspect]
     Active Substance: PYRAZINAMIDE
     Route: 048
     Dates: start: 20171010
  12. TERIZIDONE [Suspect]
     Active Substance: TERIZIDONE
     Route: 048
     Dates: start: 20180725, end: 20180926
  13. BEDAQUILINE [Suspect]
     Active Substance: BEDAQUILINE
     Route: 048
     Dates: start: 20180118
  14. ETHIONAMIDE [Suspect]
     Active Substance: ETHIONAMIDE
     Route: 048
     Dates: start: 20180725, end: 20180918
  15. NEVIRAPINE. [Concomitant]
     Active Substance: NEVIRAPINE
  16. POTASSIUM CHLORIDE EXTENDED RELEASE [Concomitant]
     Active Substance: POTASSIUM CHLORIDE
  17. CLOFAZIMINE [Suspect]
     Active Substance: CLOFAZIMINE
     Route: 048
     Dates: start: 20171010
  18. LANSOPRAZOLE. [Concomitant]
     Active Substance: LANSOPRAZOLE

REACTIONS (2)
  - Vomiting [Recovered/Resolved]
  - Psychotic disorder [Not Recovered/Not Resolved]

NARRATIVE: CASE EVENT DATE: 20180818
